FAERS Safety Report 24325407 (Version 1)
Quarter: 2024Q3

REPORT INFORMATION
  Report Type: Report from Study
  Country: AU (occurrence: None)
  Receive Date: 20240917
  Receipt Date: 20240917
  Transmission Date: 20241017
  Serious: Yes (Hospitalization)
  Sender: ASTRAZENECA
  Company Number: 2024A208837

PATIENT
  Sex: Female

DRUGS (1)
  1. FASENRA [Suspect]
     Active Substance: BENRALIZUMAB
     Indication: Asthma
     Route: 058
     Dates: start: 20240905

REACTIONS (6)
  - Injection site reaction [Recovering/Resolving]
  - Chest discomfort [Unknown]
  - Upper respiratory tract congestion [Unknown]
  - Injection site inflammation [Unknown]
  - Injection site rash [Unknown]
  - Asthma [Recovering/Resolving]
